FAERS Safety Report 8287929-1 (Version None)
Quarter: 2012Q2

REPORT INFORMATION
  Report Type: 
  Country: None (occurrence: None)
  Receive Date: 20120411
  Receipt Date: 20120411
  Transmission Date: 20120825
  Serious: Yes (Death)
  Sender: FDA-Public Use
  Company Number: None

PATIENT
  Age: 66 Year
  Sex: Male
  Weight: 112.5 kg

DRUGS (1)
  1. ZOLEDRONIC ACID MONOHYDRATE [Suspect]
     Indication: METASTASES TO BONE
     Dosage: 4 MG Q6WEEKS APPROXIMAT  IV
     Route: 042
     Dates: start: 20090727, end: 20111228

REACTIONS (2)
  - OSTEONECROSIS OF JAW [None]
  - DISEASE PROGRESSION [None]
